FAERS Safety Report 4402902-9 (Version None)
Quarter: 2004Q3

REPORT INFORMATION
  Report Type: 
  Country: None (occurrence: None)
  Receive Date: 20040721
  Receipt Date: 20040713
  Transmission Date: 20050211
  Serious: Yes (Hospitalization)
  Sender: FDA-Public Use
  Company Number: PHEH2004US07484

PATIENT
  Age: 33 Year
  Sex: Female
  Weight: 51 kg

DRUGS (9)
  1. CLOZARIL [Suspect]
     Indication: SCHIZOAFFECTIVE DISORDER
     Dosage: 450 MG/DAY
     Route: 048
     Dates: end: 20040712
  2. DEPAKOTE [Concomitant]
  3. SYNTHROID [Concomitant]
  4. ZYRTEC [Concomitant]
  5. RANITIDINE [Concomitant]
  6. PREMARIN                                /SCH/ [Concomitant]
  7. SORBITOL [Concomitant]
  8. ZELNORM                                 /USA/ [Concomitant]
  9. ACIPHEX [Concomitant]

REACTIONS (7)
  - FLATULENCE [None]
  - GALLBLADDER DISORDER [None]
  - ILEUS [None]
  - NAUSEA [None]
  - SCAN ABDOMEN ABNORMAL [None]
  - VOMITING [None]
  - WEIGHT DECREASED [None]
